FAERS Safety Report 14604215 (Version 2)
Quarter: 2018Q1

REPORT INFORMATION
  Report Type: Spontaneous
  Country: DE (occurrence: DE)
  Receive Date: 20180306
  Receipt Date: 20180327
  Transmission Date: 20180509
  Serious: Yes (Hospitalization)
  Sender: FDA-Public Use
  Company Number: DE-TEVA-2018-DE-863143

PATIENT
  Sex: Female

DRUGS (6)
  1. DOXORUBICIN [Suspect]
     Active Substance: DOXORUBICIN
     Indication: B-CELL LYMPHOMA
     Dosage: 84 MG, UNK (DATE LAST CYCLE OF DOXORUBICIN STARTED PRIOR TO SAE: 04/JAN/2018)
     Route: 042
     Dates: start: 20171221
  2. VINCRISTINE [Suspect]
     Active Substance: VINCRISTINE
     Indication: B-CELL LYMPHOMA
     Dosage: 2.83 MG, UNK, (DATE LAST CYCLE OF VINCRISTINE STARTED PRIOR TO SAE: 04/JAN/2018)
     Route: 042
     Dates: start: 20171229
  3. RITUXIMAB. [Suspect]
     Active Substance: RITUXIMAB
     Indication: B-CELL LYMPHOMA
     Dosage: 630 MG, UNK (DATE LAST RITUXIMAB GIVEN PRIOR TO SAE: 03/JAN/2018)
     Route: 042
     Dates: start: 20171216
  4. CYCLOPHOSPHAMIDE. [Suspect]
     Active Substance: CYCLOPHOSPHAMIDE
     Indication: B-CELL LYMPHOMA
     Dosage: 1260 MG, UNK (DATE LAST CYCLE OF CYCLOPHOSPHAMIDE STARTED PRIOR TO SAE: 04/JAN/2018)
     Route: 042
     Dates: start: 20171221
  5. PREDNISONE. [Suspect]
     Active Substance: PREDNISONE
     Indication: B-CELL LYMPHOMA
     Dosage: 100 MG, UNK, (DATE LAST CYCLE OF PREDNISONE STARTED PRIOR TO SAE: 04/JAN/2018)
     Route: 065
  6. PEGFILGRASTIM [Suspect]
     Active Substance: PEGFILGRASTIM
     Indication: B-CELL LYMPHOMA
     Dosage: UNK
     Route: 058
     Dates: start: 20171224

REACTIONS (1)
  - General physical health deterioration [Not Recovered/Not Resolved]

NARRATIVE: CASE EVENT DATE: 20180108
